FAERS Safety Report 8235268-7 (Version None)
Quarter: 2012Q1

REPORT INFORMATION
  Report Type: 
  Country: None (occurrence: None)
  Receive Date: 20120326
  Receipt Date: 20120313
  Transmission Date: 20120608
  Serious: Yes (Hospitalization)
  Sender: FDA-Public Use
  Company Number: FR-BRISTOL-MYERS SQUIBB COMPANY-16456071

PATIENT
  Age: 55 Year
  Sex: Female

DRUGS (5)
  1. RETROVIR [Suspect]
     Indication: HIV INFECTION
  2. TRUVADA [Suspect]
     Indication: HIV INFECTION
     Dates: start: 20051122, end: 20120125
  3. NORVIR [Suspect]
     Indication: HIV INFECTION
     Dates: start: 20051122
  4. REYATAZ [Suspect]
     Indication: HIV INFECTION
     Dates: start: 20051122, end: 20120125
  5. VIDEX [Suspect]
     Indication: HIV INFECTION
     Dates: start: 19970101

REACTIONS (1)
  - NEPHROLITHIASIS [None]
